FAERS Safety Report 8191955-0 (Version None)
Quarter: 2012Q1

REPORT INFORMATION
  Report Type: 
  Country: None (occurrence: None)
  Receive Date: 20120307
  Receipt Date: 20120302
  Transmission Date: 20120608
  Serious: Yes (Life-Threatening, Hospitalization)
  Sender: FDA-Public Use
  Company Number: PHHO2010DE14669

PATIENT
  Sex: Male

DRUGS (3)
  1. EVEROLIMUS [Suspect]
     Indication: HEART TRANSPLANT
     Dosage: UNK
     Route: 048
  2. MYCOPHENOLATE MOFETIL [Suspect]
     Indication: HEART TRANSPLANT
  3. SANDIMMUNE [Suspect]
     Indication: HEART TRANSPLANT

REACTIONS (4)
  - BACTERIAL INFECTION [None]
  - EPSTEIN-BARR VIRUS INFECTION [None]
  - B-CELL LYMPHOMA [None]
  - C-REACTIVE PROTEIN INCREASED [None]
